FAERS Safety Report 6998966-9 (Version None)
Quarter: 2010Q3

REPORT INFORMATION
  Report Type: 
  Country: None (occurrence: None)
  Receive Date: 20100920
  Receipt Date: 20100309
  Transmission Date: 20110219
  Serious: No
  Sender: FDA-Public Use
  Company Number: US-ASTRAZENECA-2010SE10243

PATIENT
  Age: 76 Year
  Sex: Female
  Weight: 72.6 kg

DRUGS (7)
  1. SEROQUEL [Suspect]
     Indication: ANXIETY
     Route: 048
     Dates: start: 20100308, end: 20100309
  2. INSULIN [Concomitant]
  3. METFORMIN [Concomitant]
  4. GLUCOSIDE [Concomitant]
  5. SYNTHROID [Concomitant]
  6. LISINOPRIL [Concomitant]
  7. DILTIAZEM [Concomitant]

REACTIONS (2)
  - HEAD DISCOMFORT [None]
  - SLEEP DISORDER [None]
